FAERS Safety Report 8468767-3 (Version None)
Quarter: 2012Q2

REPORT INFORMATION
  Report Type: 
  Country: None (occurrence: None)
  Receive Date: 20120626
  Receipt Date: 20120619
  Transmission Date: 20120825
  Serious: Yes (Hospitalization)
  Sender: FDA-Public Use
  Company Number: US-ALEXION-A201201106

PATIENT
  Sex: Male
  Weight: 65.76 kg

DRUGS (6)
  1. CYCLOSPORINE [Concomitant]
     Dosage: 100 MG (MODIFIED)
  2. PEN-VEE K [Concomitant]
     Dosage: 500 MG, BID
  3. VITAMIN B-12 [Concomitant]
     Dosage: 1 MG, UNK
     Route: 048
  4. SOLIRIS [Suspect]
     Indication: PAROXYSMAL NOCTURNAL HAEMOGLOBINURIA
     Dosage: UNK
     Route: 042
  5. FOLIC ACID [Concomitant]
     Dosage: 1 MG, UNK
  6. COUMADIN [Concomitant]
     Dosage: 5 MG, UNK
     Route: 048

REACTIONS (1)
  - NEPHROLITHIASIS [None]
